FAERS Safety Report 6933556-5 (Version None)
Quarter: 2010Q3

REPORT INFORMATION
  Report Type: 
  Country: None (occurrence: None)
  Receive Date: 20100820
  Receipt Date: 20100813
  Transmission Date: 20110219
  Serious: Yes (Hospitalization)
  Sender: FDA-Public Use
  Company Number: DE-ASTRAZENECA-2010SE38019

PATIENT
  Age: 29 Year
  Sex: Male
  Weight: 89 kg

DRUGS (5)
  1. ENTOCORT KAPSELN [Suspect]
     Indication: COLITIS ULCERATIVE
     Route: 048
     Dates: start: 20090819
  2. ENTOCORT KAPSELN [Suspect]
     Route: 048
     Dates: start: 20100405
  3. METRONIDAZOLE [Concomitant]
     Indication: COLITIS ULCERATIVE
     Route: 048
     Dates: start: 20100228
  4. PANTOZOL [Concomitant]
     Indication: PROPHYLAXIS AGAINST GASTROINTESTINAL ULCER
     Route: 048
     Dates: start: 20090819
  5. TINCTURA OPII [Concomitant]
     Indication: DIARRHOEA
     Route: 048
     Dates: start: 20090819

REACTIONS (1)
  - DIABETES MELLITUS [None]
